FAERS Safety Report 24170260 (Version 1)
Quarter: 2024Q3

REPORT INFORMATION
  Report Type: Spontaneous
  Country: CA (occurrence: CA)
  Receive Date: 20240803
  Receipt Date: 20240803
  Transmission Date: 20241016
  Serious: Yes (Congenital Anomaly)
  Sender: TEVA
  Company Number: CA-TEVA-VS-3226716

PATIENT
  Sex: Female
  Weight: 1 kg

DRUGS (2)
  1. PREGABALIN [Suspect]
     Active Substance: PREGABALIN
     Indication: Fibromyalgia
     Route: 048
  2. PREGABALIN [Suspect]
     Active Substance: PREGABALIN
     Indication: Fibromyalgia
     Route: 002

REACTIONS (4)
  - Cerebrospinal fluid reservoir placement [Unknown]
  - Cerebral ventricle dilatation [Unknown]
  - Aqueductal stenosis [Unknown]
  - Ventriculo-peritoneal shunt [Unknown]
